FAERS Safety Report 13994637 (Version 5)
Quarter: 2018Q3

REPORT INFORMATION
  Report Type: Report from Study
  Country: None (occurrence: US)
  Receive Date: 20170921
  Receipt Date: 20180704
  Transmission Date: 20181010
  Serious: Yes (Hospitalization, Other)
  Sender: FDA-Public Use
  Company Number: US-ABBVIE-17K-163-1902754-00

PATIENT
  Sex: Male

DRUGS (3)
  1. HYDROCODONE [Concomitant]
     Active Substance: HYDROCODONE
     Indication: PRODUCT USED FOR UNKNOWN INDICATION
  2. HUMIRA [Suspect]
     Active Substance: ADALIMUMAB
     Indication: PSORIASIS
     Route: 058
     Dates: start: 2016, end: 2017
  3. HUMIRA [Suspect]
     Active Substance: ADALIMUMAB
     Route: 058
     Dates: start: 201703

REACTIONS (17)
  - Diabetes mellitus [Not Recovered/Not Resolved]
  - Hypersomnia [Unknown]
  - Fall [Recovered/Resolved]
  - Spinal operation [Recovering/Resolving]
  - Arthritis [Unknown]
  - Contusion [Unknown]
  - Road traffic accident [Recovering/Resolving]
  - Fall [Not Recovered/Not Resolved]
  - Cataract [Unknown]
  - Chest pain [Unknown]
  - Dizziness [Unknown]
  - Coronary vein stenosis [Unknown]
  - Dyspnoea [Unknown]
  - Limb injury [Unknown]
  - Nasopharyngitis [Unknown]
  - Cyst [Unknown]
  - Peripheral swelling [Not Recovered/Not Resolved]

NARRATIVE: CASE EVENT DATE: 2017
